FAERS Safety Report 19065099 (Version 1)
Quarter: 2021Q1

REPORT INFORMATION
  Report Type: Spontaneous
  Country: IL (occurrence: IL)
  Receive Date: 20210326
  Receipt Date: 20210326
  Transmission Date: 20210420
  Serious: Yes (Other)
  Sender: FDA-Public Use
  Company Number: IL-ROCHE-2796402

PATIENT
  Age: 64 Year
  Sex: Male

DRUGS (1)
  1. XELODA [Suspect]
     Active Substance: CAPECITABINE
     Indication: ADENOCARCINOMA
     Route: 065
     Dates: end: 202002

REACTIONS (2)
  - Metastasis [Unknown]
  - Liver disorder [Unknown]

NARRATIVE: CASE EVENT DATE: 202101
